FAERS Safety Report 8469431-7 (Version None)
Quarter: 2012Q2

REPORT INFORMATION
  Report Type: 
  Country: None (occurrence: None)
  Receive Date: 20120621
  Receipt Date: 20120621
  Transmission Date: 20120825
  Serious: Yes (Life-Threatening, Hospitalization)
  Sender: FDA-Public Use
  Company Number: None

PATIENT
  Sex: Male
  Weight: 77.1115 kg

DRUGS (3)
  1. SIMVASTATIN [Suspect]
     Dosage: 10 MG 1/2 TABLET NIGHTLY MOUTH
     Route: 048
     Dates: start: 20120512
  2. SIMVASTATIN [Suspect]
     Dosage: 10 MG 1/2 TABLET NIGHTLY MOUTH
     Route: 048
     Dates: start: 20120511
  3. SIMVASTATIN [Suspect]
     Dosage: 10 MG 1/2 TABLET NIGHTLY MOUTH
     Route: 048
     Dates: start: 20120513

REACTIONS (6)
  - MUSCULOSKELETAL DISORDER [None]
  - DYSPNOEA [None]
  - CEREBROVASCULAR ACCIDENT [None]
  - VOMITING [None]
  - ABDOMINAL PAIN [None]
  - DIARRHOEA [None]
